FAERS Safety Report 12863935 (Version 1)
Quarter: 2016Q4

REPORT INFORMATION
  Report Type: Spontaneous
  Country: US (occurrence: US)
  Receive Date: 20161019
  Receipt Date: 20161019
  Transmission Date: 20170207
  Serious: Yes (Disabling)
  Sender: FDA-Public Use
  Company Number: PHEH2016US026788

PATIENT
  Age: 71 Year
  Weight: 79.1 kg

DRUGS (1)
  1. RECLAST [Suspect]
     Active Substance: ZOLEDRONIC ACID
     Indication: OSTEOPOROTIC FRACTURE
     Dosage: 5 MG, Q12MO
     Route: 042
     Dates: start: 20160919

REACTIONS (7)
  - Asthenia [Recovering/Resolving]
  - Muscular weakness [Unknown]
  - Pyrexia [Unknown]
  - Bone pain [Recovering/Resolving]
  - Headache [Recovering/Resolving]
  - Lethargy [Unknown]
  - Pain [Unknown]

NARRATIVE: CASE EVENT DATE: 20160919
